FAERS Safety Report 24726157 (Version 1)
Quarter: 2024Q4

REPORT INFORMATION
  Report Type: Spontaneous
  Country: GB (occurrence: GB)
  Receive Date: 20241212
  Receipt Date: 20241212
  Transmission Date: 20250115
  Serious: Yes (Death, Life-Threatening, Hospitalization, Disabling, Congenital Anomaly, Other)
  Sender: PERRIGO
  Company Number: GB-MHRA-TPP10934609C7373448YC1732722850490

PATIENT
  Age: 22 Year
  Sex: Female
  Weight: 19 kg

DRUGS (1)
  1. ACETAMINOPHEN [Suspect]
     Active Substance: ACETAMINOPHEN
     Indication: Ill-defined disorder
     Route: 065
     Dates: start: 20241127

REACTIONS (1)
  - Pharyngeal swelling [Fatal]
